FAERS Safety Report 22147804 (Version 1)
Quarter: 2023Q1

REPORT INFORMATION
  Report Type: Spontaneous
  Country: US (occurrence: None)
  Receive Date: 20230328
  Receipt Date: 20230328
  Transmission Date: 20230417
  Serious: Yes (Other)
  Sender: FDA-Public Use
  Company Number: US-ROCHE-3310775

PATIENT
  Age: 91 Year
  Sex: Male

DRUGS (26)
  1. ACTIVASE [Suspect]
     Active Substance: ALTEPLASE
     Indication: Cerebrovascular accident
     Dosage: AS A BOLUS?31/AUG/2024
     Route: 040
     Dates: start: 20230313, end: 20230313
  2. ACTIVASE [Suspect]
     Active Substance: ALTEPLASE
  3. ACTIVASE [Suspect]
     Active Substance: ALTEPLASE
     Dosage: GIVEN OVER 60 MINUTES?31/AUG/2024
     Route: 041
     Dates: start: 20230313, end: 20230313
  4. ACTIVASE [Suspect]
     Active Substance: ALTEPLASE
  5. PANTOPRAZOLE [Concomitant]
     Active Substance: PANTOPRAZOLE
     Indication: Gastrointestinal disorder prophylaxis
     Dosage: GIVEN DURING HOSPITAL STAY PER HOSPITAL PROTOCOL
     Route: 042
     Dates: start: 20230313
  6. CHLORHEXIDINE [Concomitant]
     Active Substance: CHLORHEXIDINE
     Dosage: FOR 3 DOSES.
     Route: 048
     Dates: start: 20230313
  7. SYSTANE (HYPROMELLOSE 2910 (4000 MPA.S)) [Concomitant]
     Active Substance: HYPROMELLOSE 2910 (4000 MPA.S)
     Indication: Dry eye
     Route: 047
     Dates: start: 20230313
  8. OMNIPAQUE [Concomitant]
     Active Substance: IOHEXOL
     Dosage: 2.2MG/KG
     Route: 042
     Dates: start: 20230313, end: 20230313
  9. NICARDIPINE [Concomitant]
     Active Substance: NICARDIPINE
     Dosage: 12.5 UNIT NOT REPORTED
     Route: 042
     Dates: start: 20230313, end: 20230313
  10. FENTANYL [Concomitant]
     Active Substance: FENTANYL
     Route: 042
     Dates: start: 20230313
  11. EPHEDRINE SULFATE [Concomitant]
     Active Substance: EPHEDRINE SULFATE
     Dosage: 10 MG/KG?GIVEN AS A ONE TIME DOSE
     Route: 042
     Dates: start: 20230313, end: 20230313
  12. LIDOCAINE [Concomitant]
     Active Substance: LIDOCAINE
     Dosage: ONCE TIME DOSE
     Dates: start: 20230313, end: 20230313
  13. PLAVIX [Concomitant]
     Active Substance: CLOPIDOGREL BISULFATE
     Route: 048
  14. OMEPRAZOLE [Concomitant]
     Active Substance: OMEPRAZOLE
     Route: 048
  15. SIMVASTATIN [Concomitant]
     Active Substance: SIMVASTATIN
     Route: 048
  16. TAMSULOSIN [Concomitant]
     Active Substance: TAMSULOSIN
     Route: 048
  17. METOPROLOL [Concomitant]
     Active Substance: METOPROLOL
     Route: 048
  18. LOSARTAN [Concomitant]
     Active Substance: LOSARTAN
     Route: 048
  19. OXCARBAZEPINE [Concomitant]
     Active Substance: OXCARBAZEPINE
     Route: 048
  20. DONEPEZIL [Concomitant]
     Active Substance: DONEPEZIL
     Route: 048
  21. NORTRIPTYLINE [Concomitant]
     Active Substance: NORTRIPTYLINE
     Route: 048
  22. MELOXICAM [Concomitant]
     Active Substance: MELOXICAM
     Route: 048
  23. ICOSAPENT ETHYL [Concomitant]
     Active Substance: ICOSAPENT ETHYL
     Route: 048
  24. VITAMIN D [Concomitant]
     Active Substance: VITAMIN D NOS
  25. VITAMIN B12 [Concomitant]
     Active Substance: CYANOCOBALAMIN
  26. SENNA [Concomitant]
     Active Substance: SENNA LEAF\SENNOSIDES\SENNOSIDES A AND B

REACTIONS (3)
  - Inappropriate schedule of product administration [Unknown]
  - Product complaint [Unknown]
  - No adverse event [Unknown]

NARRATIVE: CASE EVENT DATE: 20230313
